FAERS Safety Report 15877779 (Version 1)
Quarter: 2019Q1

REPORT INFORMATION
  Report Type: Spontaneous
  Country: US (occurrence: US)
  Receive Date: 20190128
  Receipt Date: 20190128
  Transmission Date: 20190417
  Serious: No
  Sender: FDA-Public Use
  Company Number: US-009507513-1901USA008146

PATIENT
  Sex: Female

DRUGS (1)
  1. NEXPLANON [Suspect]
     Active Substance: ETONOGESTREL
     Dosage: 68MG/ 1 IMPLANT EVERY 3 YEARS
     Route: 059

REACTIONS (5)
  - Complication associated with device [Not Recovered/Not Resolved]
  - Device expulsion [Not Recovered/Not Resolved]
  - No adverse event [Not Recovered/Not Resolved]
  - Device deployment issue [Not Recovered/Not Resolved]
  - Complication of device removal [Not Recovered/Not Resolved]
